FAERS Safety Report 7727525-5 (Version None)
Quarter: 2011Q3

REPORT INFORMATION
  Report Type: 
  Country: None (occurrence: None)
  Receive Date: 20110902
  Receipt Date: 20110830
  Transmission Date: 20111222
  Serious: Yes (Hospitalization, Other)
  Sender: FDA-Public Use
  Company Number: US-PFIZER INC-2011145091

PATIENT
  Sex: Female

DRUGS (10)
  1. CHANTIX [Suspect]
     Dosage: 0.5MG/1MG
     Dates: start: 20080601, end: 20080601
  2. FLURAZEPAM [Concomitant]
     Indication: SLEEP DISORDER
     Dosage: UNK
     Dates: start: 20020101
  3. REQUIP [Concomitant]
     Indication: RESTLESS LEGS SYNDROME
     Dosage: UNK
     Dates: start: 20040101
  4. NEURONTIN [Concomitant]
     Indication: RESTLESS LEGS SYNDROME
     Dosage: UNK
     Dates: start: 20040101
  5. DARVOCET [Concomitant]
     Indication: PAIN
     Dosage: UNK
     Dates: start: 20030101, end: 20100101
  6. CHANTIX [Suspect]
     Indication: SMOKING CESSATION THERAPY
     Dosage: 0.5MG/1MG
     Dates: start: 20071101, end: 20071201
  7. KLONOPIN [Concomitant]
     Indication: ANXIETY
     Dosage: UNK
     Dates: start: 20030101
  8. PROZAC [Concomitant]
     Indication: DEPRESSION
     Dosage: UNK
     Dates: start: 20010101
  9. FLEXERIL [Concomitant]
     Indication: PAIN
     Dosage: UNK
     Dates: start: 20030101, end: 20100101
  10. CHANTIX [Suspect]
     Dosage: 0.5MG/1MG
     Dates: start: 20090101, end: 20090501

REACTIONS (5)
  - ANXIETY [None]
  - DEPRESSION [None]
  - INTENTIONAL OVERDOSE [None]
  - SUICIDE ATTEMPT [None]
  - ABNORMAL BEHAVIOUR [None]
